FAERS Safety Report 4804825-X (Version None)
Quarter: 2005Q4

REPORT INFORMATION
  Report Type: 
  Country: None (occurrence: None)
  Receive Date: 20051017
  Receipt Date: 20051003
  Transmission Date: 20060501
  Serious: Yes (Hospitalization)
  Sender: FDA-Public Use
  Company Number: 2005137163

PATIENT
  Sex: Male

DRUGS (3)
  1. TRIFLUCAN (FLUCONAZOLE) [Suspect]
     Indication: EAR INFECTION
     Dates: start: 20050820, end: 20050828
  2. ATORVASTATIN CALCIUM [Concomitant]
  3. UNSPECIFIED TREATMENTS (ALL OTHER THERAPEUTIC PRODUCTS) [Concomitant]

REACTIONS (2)
  - PURPURA [None]
  - VIRAL INFECTION [None]
